APPROVED DRUG PRODUCT: ACTIFED W/ CODEINE
Active Ingredient: CODEINE PHOSPHATE; PSEUDOEPHEDRINE HYDROCHLORIDE; TRIPROLIDINE HYDROCHLORIDE
Strength: 10MG/5ML;30MG/5ML;1.25MG/5ML **Federal Register determination that product was not discontinued or withdrawn for safety or effectiveness reasons**
Dosage Form/Route: SYRUP;ORAL
Application: N012575 | Product #003
Applicant: GLAXOSMITHKLINE
Approved: Apr 4, 1984 | RLD: No | RS: No | Type: DISCN